FAERS Safety Report 6764477-9 (Version None)
Quarter: 2010Q2

REPORT INFORMATION
  Report Type: 
  Country: None (occurrence: None)
  Receive Date: 20100609
  Receipt Date: 20100322
  Transmission Date: 20101027
  Serious: No
  Sender: FDA-Public Use
  Company Number: 2010009167

PATIENT
  Age: 6 Year
  Sex: Female
  Weight: 24.9478 kg

DRUGS (2)
  1. ZYRTEC [Suspect]
     Indication: URTICARIA
     Dosage: 1/2 TSP ONE DAILY, ORAL
     Route: 048
     Dates: start: 20040101
  2. MULTIVITAMINS (ASCORBIC ACID, ERGOCALCIFEROL, FOLIC ACID, NICOTINAMIDE [Concomitant]

REACTIONS (2)
  - CONTUSION [None]
  - WRONG DRUG ADMINISTERED [None]
